FAERS Safety Report 24147071 (Version 1)
Quarter: 2024Q3

REPORT INFORMATION
  Report Type: Report from Study
  Country: IN (occurrence: IN)
  Receive Date: 20240729
  Receipt Date: 20240729
  Transmission Date: 20241016
  Serious: Yes (Hospitalization)
  Sender: MYLAN
  Company Number: IN-MYLANLABS-2024M1069652

PATIENT

DRUGS (1)
  1. METHOTREXATE [Suspect]
     Active Substance: METHOTREXATE
     Indication: Rheumatoid arthritis
     Dosage: 10 MILLIGRAM, QD,THE PATIENT TOOK 10MG DAILY FOR 6?DAYS (TOTAL 60MG OVER 6?DAYS)..
     Route: 065

REACTIONS (6)
  - Toxicity to various agents [Recovering/Resolving]
  - Pancytopenia [Recovered/Resolved]
  - Stomatitis [Unknown]
  - Ludwig angina [Unknown]
  - Inappropriate schedule of product administration [Unknown]
  - Drug ineffective [Unknown]
